FAERS Safety Report 19429562 (Version 1)
Quarter: 2021Q2

REPORT INFORMATION
  Report Type: Spontaneous
  Country: US (occurrence: US)
  Receive Date: 20210617
  Receipt Date: 20210617
  Transmission Date: 20210717
  Serious: Yes (Disabling, Other)
  Sender: FDA-Public Use
  Company Number: US-REGENERON PHARMACEUTICALS, INC.-2021-58933

PATIENT

DRUGS (2)
  1. EYLEA [Suspect]
     Active Substance: AFLIBERCEPT
     Indication: MACULAR OEDEMA
     Dosage: UNK, Q8W
     Route: 031
     Dates: start: 20210526, end: 20210526
  2. EYLEA [Suspect]
     Active Substance: AFLIBERCEPT
     Indication: RETINAL VEIN OCCLUSION
     Dosage: UNK , Q8W
     Route: 031

REACTIONS (7)
  - Headache [Unknown]
  - Burning sensation [Recovered/Resolved]
  - Facial pain [Recovered/Resolved]
  - Eye pain [Unknown]
  - Photopsia [Recovered/Resolved]
  - Blindness transient [Recovered/Resolved]
  - Myalgia [Unknown]
